FAERS Safety Report 15961048 (Version 1)
Quarter: 2019Q1

REPORT INFORMATION
  Report Type: Spontaneous
  Country: US (occurrence: US)
  Receive Date: 20190214
  Receipt Date: 20190214
  Transmission Date: 20190417
  Serious: No
  Sender: FDA-Public Use
  Company Number: US-PFIZER INC-2019062273

PATIENT
  Age: 77 Year
  Sex: Female

DRUGS (3)
  1. ATORVASTATIN CALCIUM. [Suspect]
     Active Substance: ATORVASTATIN CALCIUM
     Dosage: UNK
  2. LAMOTRIGINE. [Suspect]
     Active Substance: LAMOTRIGINE
     Dosage: UNK
  3. RISPERDAL [Suspect]
     Active Substance: RISPERIDONE
     Dosage: UNK

REACTIONS (1)
  - Drug hypersensitivity [Unknown]
